FAERS Safety Report 5870022 (Version 3)
Quarter: 2013Q1

REPORT INFORMATION
  Report Type: Spontaneous
  Country: US (occurrence: US)
  Receive Date: 20050830
  Receipt Date: 20130321
  Transmission Date: 20140127
  Serious: Yes (Hospitalization, Other)
  Sender: FDA-Public Use
  Company Number: US-JNJFOC-20050806446

PATIENT
  Age: 15 Year
  Sex: Female
  Weight: 63.5 kg

DRUGS (3)
  1. IBUPROFEN [Suspect]
     Indication: ILL-DEFINED DISORDER
     Route: 048
  2. DIPHENHYDRAMINE [Suspect]
     Indication: ILL-DEFINED DISORDER
     Route: 048
  3. ZOLOFT [Suspect]
     Indication: DEPRESSION
     Route: 048

REACTIONS (9)
  - Bundle branch block right [Recovered/Resolved]
  - Myocardial ischaemia [Recovered/Resolved]
  - Electrocardiogram QT prolonged [Recovered/Resolved]
  - Sinus tachycardia [Recovered/Resolved]
  - Overdose [Recovered/Resolved]
  - Mydriasis [Recovered/Resolved]
  - Agitation [Recovered/Resolved]
  - Gait disturbance [Recovered/Resolved]
  - Somnolence [Recovered/Resolved]
